FAERS Safety Report 17690161 (Version 1)
Quarter: 2020Q2

REPORT INFORMATION
  Report Type: Spontaneous
  Country: BR (occurrence: BR)
  Receive Date: 20200421
  Receipt Date: 20200421
  Transmission Date: 20200714
  Serious: Yes (Other)
  Sender: FDA-Public Use
  Company Number: BR-GLAXOSMITHKLINE-BR2020GSK062992

PATIENT
  Sex: Female

DRUGS (10)
  1. RIFAMPIN. [Concomitant]
     Active Substance: RIFAMPIN
     Indication: MYCOBACTERIAL INFECTION
     Dosage: UNK
  2. AZITHROMYCIN ANHYDROUS. [Concomitant]
     Active Substance: AZITHROMYCIN ANHYDROUS
     Indication: PROPHYLAXIS
     Dosage: UNK
  3. ETHAMBUTOL [Concomitant]
     Active Substance: ETHAMBUTOL HYDROCHLORIDE
     Indication: MYCOBACTERIAL INFECTION
     Dosage: UNK
  4. RALTEGRAVIR. [Suspect]
     Active Substance: RALTEGRAVIR
     Indication: HIV INFECTION
     Dosage: UNK
  5. ETRAVIRINE [Suspect]
     Active Substance: ETRAVIRINE
     Indication: HIV INFECTION
     Dosage: UNK
  6. CLARITHROMYCIN. [Concomitant]
     Active Substance: CLARITHROMYCIN
     Indication: MYCOBACTERIAL INFECTION
     Dosage: UNK
  7. LAMIVUDINE. [Suspect]
     Active Substance: LAMIVUDINE
     Indication: HIV INFECTION
     Dosage: UNK
  8. TENOFOVIR DISOPROXIL FUMARATE. [Suspect]
     Active Substance: TENOFOVIR DISOPROXIL FUMARATE
     Indication: HIV INFECTION
     Dosage: UNK
  9. TRIMETHOPRIM + SULFAMETHOXAZOL [Concomitant]
     Active Substance: SULFAMERAZINE SODIUM\TRIMETHOPRIM
     Indication: PROPHYLAXIS
     Dosage: UNK
  10. DARUNAVIR + RITONAVIR [Suspect]
     Active Substance: DARUNAVIR\RITONAVIR
     Indication: HIV INFECTION
     Dosage: UNK

REACTIONS (13)
  - Viral mutation identified [Unknown]
  - Paradoxical drug reaction [Recovered/Resolved]
  - Mycobacterial infection [Recovered/Resolved]
  - Erythema [Recovered/Resolved]
  - Tenderness [Recovered/Resolved]
  - Swelling [Recovered/Resolved]
  - Condition aggravated [Recovered/Resolved]
  - Herpes zoster [Recovered/Resolved]
  - Virologic failure [Unknown]
  - Skin lesion [Recovered/Resolved]
  - Immune reconstitution inflammatory syndrome [Recovered/Resolved]
  - Skin necrosis [Recovered/Resolved]
  - Disease recurrence [Recovered/Resolved]
